FAERS Safety Report 22004923 (Version 2)
Quarter: 2023Q1

REPORT INFORMATION
  Report Type: Spontaneous
  Country: US (occurrence: US)
  Receive Date: 20230217
  Receipt Date: 20230222
  Transmission Date: 20230418
  Serious: No
  Sender: FDA-Public Use
  Company Number: US-PFIZER INC-PV202300030222

PATIENT
  Age: 86 Year
  Sex: Male

DRUGS (4)
  1. BRAFTOVI [Suspect]
     Active Substance: ENCORAFENIB
     Dosage: 75 MG
  2. BRAFTOVI [Suspect]
     Active Substance: ENCORAFENIB
     Dosage: 450 MG
  3. MEKTOVI [Suspect]
     Active Substance: BINIMETINIB
     Dosage: 15 MG
  4. MEKTOVI [Suspect]
     Active Substance: BINIMETINIB
     Dosage: 45 MG

REACTIONS (9)
  - Neoplasm progression [Unknown]
  - Diarrhoea [Unknown]
  - Pruritus [Unknown]
  - Constipation [Unknown]
  - Depression [Unknown]
  - Decreased appetite [Unknown]
  - Ocular discomfort [Unknown]
  - Asthenia [Unknown]
  - Fall [Unknown]
